FAERS Safety Report 4569275-2 (Version None)
Quarter: 2005Q1

REPORT INFORMATION
  Report Type: 
  Country: None (occurrence: None)
  Receive Date: 20050203
  Receipt Date: 20050125
  Transmission Date: 20050727
  Serious: Yes (Hospitalization, Other)
  Sender: FDA-Public Use
  Company Number: US-GLAXOSMITHKLINE-A0542068A

PATIENT
  Age: 41 Year
  Sex: Male
  Weight: 104 kg

DRUGS (1)
  1. TUMS [Suspect]
     Indication: DYSPEPSIA
     Route: 048

REACTIONS (5)
  - CORONARY ARTERY STENOSIS [None]
  - GASTROOESOPHAGEAL REFLUX DISEASE [None]
  - INCONTINENCE [None]
  - SPINAL COLUMN STENOSIS [None]
  - TACHYCARDIA [None]
